FAERS Safety Report 24393065 (Version 1)
Quarter: 2024Q4

REPORT INFORMATION
  Report Type: Spontaneous
  Country: US (occurrence: None)
  Receive Date: 20241003
  Receipt Date: 20241003
  Transmission Date: 20250115
  Serious: No
  Sender: Public
  Company Number: None

PATIENT
  Age: 47 Year
  Sex: Female
  Weight: 68.85 kg

DRUGS (22)
  1. QULIPTA [Suspect]
     Active Substance: ATOGEPANT
     Indication: Migraine
     Dosage: OTHER QUANTITY : 1 TABLET(S);?FREQUENCY : AT BEDTIME;?
     Route: 048
  2. LOSARTAN POTASSIUM [Concomitant]
  3. LABETALOL [Concomitant]
  4. AMLODIPINE [Concomitant]
  5. Protonix [Concomitant]
  6. ZYRTEC [Concomitant]
     Active Substance: CETIRIZINE HYDROCHLORIDE
  7. GABAPENTIN [Concomitant]
  8. BACLOFEN [Concomitant]
  9. FIORICET [Concomitant]
  10. zofran [Concomitant]
  11. ATIVAN [Concomitant]
  12. CHLORPROMAZINE [Concomitant]
     Active Substance: CHLORPROMAZINE
  13. EXCEDRIN MIGRAINE [Concomitant]
     Active Substance: ACETAMINOPHEN\ASPIRIN\CAFFEINE
  14. MUCINEX [Concomitant]
  15. GAS-X [Concomitant]
  16. Pepcid [Concomitant]
  17. COLACE [Concomitant]
  18. Dulcolax [Concomitant]
  19. POTASSIUM [Concomitant]
  20. VITAMIN D3 [Concomitant]
  21. vitamin b12 [Concomitant]
  22. MAGNESIUM [Concomitant]
     Active Substance: MAGNESIUM

REACTIONS (11)
  - Hunger [None]
  - Abdominal pain upper [None]
  - Decreased appetite [None]
  - Weight decreased [None]
  - Thirst [None]
  - Constipation [None]
  - Fatigue [None]
  - Dry mouth [None]
  - Libido decreased [None]
  - Migraine [None]
  - Ageusia [None]
